FAERS Safety Report 9239405 (Version 1)
Quarter: 2013Q2

REPORT INFORMATION
  Report Type: Spontaneous
  Country: US (occurrence: US)
  Receive Date: 20130418
  Receipt Date: 20130418
  Transmission Date: 20140414
  Serious: No
  Sender: FDA-Public Use
  Company Number: US-PFIZER INC-2013117782

PATIENT
  Sex: Female

DRUGS (1)
  1. ZARONTIN [Suspect]
     Dosage: UNK

REACTIONS (1)
  - No adverse event [Unknown]
